FAERS Safety Report 7893638-0 (Version None)
Quarter: 2011Q4

REPORT INFORMATION
  Report Type: 
  Country: None (occurrence: None)
  Receive Date: 20111104
  Receipt Date: 20111031
  Transmission Date: 20120403
  Serious: Yes (Hospitalization)
  Sender: FDA-Public Use
  Company Number: JP-GLAXOSMITHKLINE-B0754553A

PATIENT
  Sex: Female
  Weight: 40 kg

DRUGS (11)
  1. TYKERB [Suspect]
     Indication: BREAST CANCER
     Dosage: 1250MG PER DAY
     Route: 048
     Dates: start: 20090701, end: 20100125
  2. LOXONIN [Concomitant]
     Indication: BACK PAIN
     Route: 048
     Dates: start: 20090701
  3. IRSOGLADINE [Concomitant]
     Route: 048
     Dates: start: 20090701
  4. FENTANYL-100 [Concomitant]
     Route: 061
     Dates: start: 20090701
  5. XELODA [Concomitant]
     Route: 048
     Dates: start: 20090701, end: 20090801
  6. TOFRANIL [Concomitant]
     Indication: DEPRESSION
     Route: 048
     Dates: start: 20090701
  7. FERROUS CITRATE [Concomitant]
     Indication: ANAEMIA
     Route: 048
     Dates: start: 20091210
  8. FAMOTIDINE [Concomitant]
     Indication: GASTRIC ULCER
     Route: 048
     Dates: start: 20090701
  9. JUVELA [Concomitant]
     Indication: PERIPHERAL COLDNESS
     Route: 048
     Dates: start: 20090701
  10. LEVOTHYROXINE SODIUM [Concomitant]
     Indication: HYPOTHYROIDISM
     Route: 048
     Dates: start: 20090701
  11. GASMOTIN [Concomitant]
     Indication: ABDOMINAL DISCOMFORT
     Route: 048
     Dates: start: 20091205

REACTIONS (3)
  - ANAEMIA [None]
  - HYPOALBUMINAEMIA [None]
  - C-REACTIVE PROTEIN INCREASED [None]
